FAERS Safety Report 12999692 (Version 1)
Quarter: 2016Q4

REPORT INFORMATION
  Report Type: Report from Study
  Country: None (occurrence: US)
  Receive Date: 20161205
  Receipt Date: 20161205
  Transmission Date: 20170207
  Serious: Yes (Hospitalization)
  Sender: FDA-Public Use
  Company Number: US-ABBVIE-16K-163-1796020-00

PATIENT
  Age: 42 Year
  Sex: Male

DRUGS (1)
  1. HUMIRA [Suspect]
     Active Substance: ADALIMUMAB
     Indication: PSORIASIS
     Route: 058
     Dates: start: 20160408

REACTIONS (2)
  - Appendicectomy [Recovering/Resolving]
  - Post procedural haemorrhage [Recovering/Resolving]

NARRATIVE: CASE EVENT DATE: 20161121
